FAERS Safety Report 21350838 (Version 1)
Quarter: 2022Q3

REPORT INFORMATION
  Report Type: Spontaneous
  Country: US (occurrence: None)
  Receive Date: 20220919
  Receipt Date: 20220919
  Transmission Date: 20221027
  Serious: Yes (Other)
  Sender: FDA-Public Use
  Company Number: None

PATIENT
  Age: 59 Year
  Sex: Female
  Weight: 114.75 kg

DRUGS (15)
  1. RYBELSUS [Suspect]
     Active Substance: SEMAGLUTIDE
     Indication: Type 2 diabetes mellitus
     Dosage: OTHER QUANTITY : 1 TABLET(S);?
     Route: 048
     Dates: start: 20220725, end: 20220919
  2. BUSPIRONE [Concomitant]
     Active Substance: BUSPIRONE HYDROCHLORIDE
  3. BUPROPION [Concomitant]
     Active Substance: BUPROPION
  4. CITALOPRAM [Concomitant]
     Active Substance: CITALOPRAM HYDROBROMIDE
  5. OZEMPIC [Concomitant]
     Active Substance: SEMAGLUTIDE
  6. ASPIRIN [Concomitant]
     Active Substance: ASPIRIN
  7. CRESTOR [Concomitant]
     Active Substance: ROSUVASTATIN CALCIUM
  8. FAMOTIDINE [Concomitant]
     Active Substance: FAMOTIDINE
  9. XANAX [Concomitant]
     Active Substance: ALPRAZOLAM
  10. LISINOPRIL [Concomitant]
     Active Substance: LISINOPRIL
  11. ZOFRAN [Concomitant]
     Active Substance: ONDANSETRON HYDROCHLORIDE
  12. MAXALT [Concomitant]
     Active Substance: RIZATRIPTAN BENZOATE
  13. e[INVALID] [Concomitant]
  14. VITAMINS [Concomitant]
     Active Substance: VITAMINS
  15. MAGNESIUM [Concomitant]
     Active Substance: MAGNESIUM

REACTIONS (1)
  - Glomerular filtration rate decreased [None]

NARRATIVE: CASE EVENT DATE: 20220915
